FAERS Safety Report 9053224 (Version 1)
Quarter: 2013Q1

REPORT INFORMATION
  Report Type: Spontaneous
  Country: US (occurrence: US)
  Receive Date: 20130208
  Receipt Date: 20130208
  Transmission Date: 20140127
  Serious: Yes (Other)
  Sender: FDA-Public Use
  Company Number: US-AMGEN-USASP2013006571

PATIENT
  Age: 19 Year
  Sex: Female

DRUGS (3)
  1. ROMIPLOSTIM [Suspect]
     Indication: THROMBOCYTOPENIA
     Dosage: 500 MUG, QWK
     Route: 058
     Dates: start: 201104
  2. PENICILLIN V POTASSIUM [Concomitant]
     Dosage: 500 MG, BID
     Route: 048
  3. MEDROXYPROGESTERONE ACETATE [Concomitant]
     Dosage: 150 MG, Q3MO
     Route: 030

REACTIONS (1)
  - Rash erythematous [Recovered/Resolved]
